FAERS Safety Report 4422906-X (Version None)
Quarter: 2004Q3

REPORT INFORMATION
  Report Type: 
  Country: None (occurrence: None)
  Receive Date: 20040811
  Receipt Date: 20040805
  Transmission Date: 20050211
  Serious: Yes (Death)
  Sender: FDA-Public Use
  Company Number: 200417749GDDC

PATIENT
  Sex: 0

DRUGS (1)
  1. DDAVP [Suspect]
     Indication: ENURESIS
     Dosage: DOSE: UNK

REACTIONS (3)
  - BRAIN OEDEMA [None]
  - CONVULSION [None]
  - HYPONATRAEMIA [None]
